FAERS Safety Report 17412535 (Version 1)
Quarter: 2020Q1

REPORT INFORMATION
  Report Type: Report from Study
  Country: AR (occurrence: AR)
  Receive Date: 20200213
  Receipt Date: 20200213
  Transmission Date: 20200409
  Serious: Yes (Other)
  Sender: FDA-Public Use
  Company Number: AR-B.I. PHARMACEUTICALS,INC./RIDGEFIELD-2020-BI-007076

PATIENT

DRUGS (1)
  1. CATAPRESAN [Suspect]
     Active Substance: CLONIDINE
     Indication: SOMATOTROPIN STIMULATION TEST
     Route: 048

REACTIONS (2)
  - Off label use [Unknown]
  - Hypotension [Unknown]
